FAERS Safety Report 22800959 (Version 3)
Quarter: 2024Q2

REPORT INFORMATION
  Report Type: Spontaneous
  Country: DE (occurrence: DE)
  Receive Date: 20230808
  Receipt Date: 20240506
  Transmission Date: 20240716
  Serious: Yes (Other)
  Sender: FDA-Public Use
  Company Number: DE-TAKEDA-2023TUS076227

PATIENT
  Sex: Male

DRUGS (1)
  1. TRENANTONE [Suspect]
     Active Substance: LEUPROLIDE ACETATE
     Indication: Hormone therapy
     Dosage: UNK
     Route: 065
     Dates: start: 202204

REACTIONS (4)
  - Atrial fibrillation [Unknown]
  - Malaise [Unknown]
  - Fall [Unknown]
  - Asthenia [Unknown]
